FAERS Safety Report 9649219 (Version 1)
Quarter: 2013Q4

REPORT INFORMATION
  Report Type: Spontaneous
  Country: US (occurrence: US)
  Receive Date: 20131028
  Receipt Date: 20131028
  Transmission Date: 20140711
  Serious: No
  Sender: FDA-Public Use
  Company Number: US-PFIZER INC-2013306033

PATIENT
  Age: 71 Year
  Sex: Female
  Weight: 60.32 kg

DRUGS (6)
  1. LIPITOR [Suspect]
     Indication: BLOOD CHOLESTEROL INCREASED
     Dosage: 10 MG, DAILY
     Route: 048
     Dates: end: 201309
  2. THYROXINE [Concomitant]
     Indication: HYPOTHYROIDISM
     Dosage: UNK
  3. TYLENOL [Concomitant]
     Indication: HEADACHE
     Dosage: UNK, AS NEEDED
  4. TYLENOL [Concomitant]
     Indication: MUSCULOSKELETAL PAIN
  5. TYLENOL [Concomitant]
     Indication: INSOMNIA
  6. BABY ASPIRIN [Concomitant]
     Dosage: 81 MG, UNK

REACTIONS (1)
  - Blood sodium decreased [Not Recovered/Not Resolved]
